FAERS Safety Report 8831170 (Version 1)
Quarter: 2012Q4

REPORT INFORMATION
  Report Type: 
  Country: JP (occurrence: JP)
  Receive Date: 20121008
  Receipt Date: 20121008
  Transmission Date: 20130627
  Serious: Yes (Other)
  Sender: FDA-Public Use
  Company Number: JP-ASTELLAS-2012JP009244

PATIENT
  Age: 13 Year
  Sex: Male

DRUGS (9)
  1. PROGRAF [Suspect]
     Indication: PROPHYLAXIS AGAINST GRAFT VERSUS HOST DISEASE
     Route: 065
  2. CYCLOPHOSPHAMIDE [Concomitant]
     Indication: BONE MARROW CONDITIONING REGIMEN
     Dosage: 120 mg/kg, Unknown/D
     Route: 065
  3. CYCLOPHOSPHAMIDE [Concomitant]
     Dosage: 1000 mg/m2, Unknown/D
     Route: 065
  4. METHOTREXATE [Concomitant]
     Indication: PROPHYLAXIS AGAINST GRAFT VERSUS HOST DISEASE
     Route: 065
  5. PREDNISOLONE [Concomitant]
     Indication: ENGRAFTMENT SYNDROME
     Dosage: 2 mg/kg, Unknown/D
     Route: 065
  6. PREDNISOLONE [Concomitant]
     Dosage: 1 mg/kg, Unknown/D
     Route: 065
  7. PREDNISOLONE [Concomitant]
     Dosage: 2 mg/kg, Unknown/D
     Route: 065
  8. METHYLPREDNISOLONE [Concomitant]
     Indication: COMPLICATIONS OF TRANSPLANTED LIVER
     Dosage: 500 mg, Unknown/D
     Route: 065
  9. MYCOPHENOLATE MOFETIL [Concomitant]
     Dosage: 2 g, Unknown/D
     Route: 065

REACTIONS (3)
  - Drug ineffective [Unknown]
  - Acute graft versus host disease in liver [Unknown]
  - Acute graft versus host disease in skin [Unknown]
